FAERS Safety Report 7771533-5 (Version None)
Quarter: 2011Q3

REPORT INFORMATION
  Report Type: 
  Country: None (occurrence: None)
  Receive Date: 20110922
  Receipt Date: 20100205
  Transmission Date: 20111222
  Serious: No
  Sender: FDA-Public Use
  Company Number: US-ASTRAZENECA-2009UW15539

PATIENT
  Age: 711 Month
  Sex: Female

DRUGS (9)
  1. CLONAZEPAM [Concomitant]
     Dosage: 1-4 MG
     Route: 048
     Dates: start: 20020826
  2. OXYCONTIN [Concomitant]
     Route: 048
     Dates: start: 20020921
  3. REQUIP [Concomitant]
     Dates: start: 20070901
  4. EFFEXOR XR [Concomitant]
     Route: 048
     Dates: start: 20020826
  5. SEROQUEL [Suspect]
     Dosage: 100-300 MG 1 TAB OPO QHS
     Route: 048
     Dates: start: 20030930
  6. ZELNORM [Concomitant]
     Dates: start: 20031007
  7. SEROQUEL [Suspect]
     Indication: ANXIETY
     Dosage: 2 TS PO QHS AND 1 T PO BID
     Route: 048
     Dates: start: 20020826
  8. OXYBUTYNIN [Concomitant]
     Dates: start: 20031009
  9. PAXIL [Concomitant]
     Route: 048
     Dates: start: 20020924

REACTIONS (2)
  - TYPE 2 DIABETES MELLITUS [None]
  - METABOLIC SYNDROME [None]
